FAERS Safety Report 10120044 (Version 1)
Quarter: 2014Q2

REPORT INFORMATION
  Report Type: Spontaneous
  Country: IN (occurrence: IN)
  Receive Date: 20140425
  Receipt Date: 20140425
  Transmission Date: 20141212
  Serious: Yes (Death)
  Sender: FDA-Public Use
  Company Number: IN-JNJFOC-20140410826

PATIENT
  Age: 30 Year
  Sex: Female

DRUGS (3)
  1. DOXORUBICIN [Suspect]
     Indication: PLASMA CELL MYELOMA
     Dosage: ON DAYS 1-4
     Route: 065
  2. VINCRISTINE [Suspect]
     Indication: PLASMA CELL MYELOMA
     Dosage: ON DAYS 1-4
     Route: 065
  3. DEXAMETHASONE [Suspect]
     Indication: PLASMA CELL MYELOMA
     Dosage: ON DAYS 1-4, 9-12 AND 17-20 REPEATED EVERY 28 DAYS
     Route: 065

REACTIONS (1)
  - Septic shock [Fatal]
